FAERS Safety Report 17905094 (Version 1)
Quarter: 2020Q2

REPORT INFORMATION
  Report Type: Spontaneous
  Country: US (occurrence: US)
  Receive Date: 20200616
  Receipt Date: 20200616
  Transmission Date: 20200714
  Serious: No
  Sender: FDA-Public Use
  Company Number: US-ROCHE-2389959

PATIENT
  Age: 56 Year
  Sex: Female
  Weight: 58.11 kg

DRUGS (1)
  1. ACTEMRA [Suspect]
     Active Substance: TOCILIZUMAB
     Indication: RHEUMATOID ARTHRITIS
     Route: 042
     Dates: start: 201904

REACTIONS (4)
  - Abdominal pain lower [Not Recovered/Not Resolved]
  - Flatulence [Not Recovered/Not Resolved]
  - Defaecation disorder [Recovered/Resolved]
  - Abdominal rigidity [Unknown]

NARRATIVE: CASE EVENT DATE: 20190611
